FAERS Safety Report 26034068 (Version 1)
Quarter: 2025Q4

REPORT INFORMATION
  Report Type: Spontaneous
  Country: US (occurrence: None)
  Receive Date: 20251111
  Receipt Date: 20251111
  Transmission Date: 20260118
  Serious: Yes (Hospitalization)
  Sender: FDA-CTU
  Company Number: None

PATIENT
  Sex: Male

DRUGS (11)
  1. VYNDAMAX [Suspect]
     Active Substance: TAFAMIDIS
     Indication: Amyloidosis
     Dosage: FREQUENCY : DAILY;?
     Route: 048
     Dates: start: 20240813
  2. ALDACTONE TAB 25MG [Concomitant]
  3. CENTRUM TAB SILVER [Concomitant]
  4. CRANBERRY TAB 400MG [Concomitant]
  5. CYCLOBENZAPRINE HYDROCHLORIDE [Concomitant]
     Active Substance: CYCLOBENZAPRINE HYDROCHLORIDE
  6. FERROUS SULF TAB  325MG [Concomitant]
  7. FLOMAX [Concomitant]
     Active Substance: TAMSULOSIN HYDROCHLORIDE
  8. GABAPENTIN TAB 600MG [Concomitant]
  9. HYDROXYZ HCL TAB 25MG [Concomitant]
  10. KENALOG-40 INJ 40MG/ML [Concomitant]
  11. LISINOPRIL [Concomitant]
     Active Substance: LISINOPRIL

REACTIONS (2)
  - Infection [None]
  - Unevaluable event [None]
